FAERS Safety Report 7332713-6 (Version None)
Quarter: 2011Q1

REPORT INFORMATION
  Report Type: 
  Country: None (occurrence: None)
  Receive Date: 20110222
  Receipt Date: 20110208
  Transmission Date: 20110831
  Serious: Yes (Other)
  Sender: FDA-Public Use
  Company Number: 006003

PATIENT
  Age: 90 Year
  Sex: Female

DRUGS (8)
  1. OPAPROSMON (LIMAPROST ALFADEX) TABLET [Concomitant]
  2. CRESTOR [Concomitant]
  3. LASIX [Concomitant]
  4. ALLORINE (ALLOPURINOL) TABLET [Concomitant]
  5. FRANDOL (ISOSORBIDE DINITRATE) TABLET [Concomitant]
  6. PLETAL [Suspect]
     Indication: ARTERIOSCLEROSIS OBLITERANS
     Dosage: 50 MG MILLIGRAM(S), BID, ORAL
     Route: 048
     Dates: start: 20080306, end: 20080912
  7. FAMOTER (ASPIRIN_DIALUMINATE) TABLET [Concomitant]
  8. CETAPRIL (ALACEPRIL) TABLET [Concomitant]

REACTIONS (3)
  - CARDIAC FAILURE [None]
  - PLEURAL EFFUSION [None]
  - CONDITION AGGRAVATED [None]
